FAERS Safety Report 18496763 (Version 2)
Quarter: 2020Q4

REPORT INFORMATION
  Report Type: Spontaneous
  Country: FR (occurrence: FR)
  Receive Date: 20201112
  Receipt Date: 20201118
  Transmission Date: 20210114
  Serious: No
  Sender: FDA-Public Use
  Company Number: FR-ASTRAZENECA-2020SF45157

PATIENT
  Age: 49 Year
  Sex: Female

DRUGS (2)
  1. ROSUVASTATIN. [Suspect]
     Active Substance: ROSUVASTATIN
     Indication: HYPERCHOLESTEROLAEMIA
     Dosage: UNK
     Route: 048
  2. CHLORMADINONE [Concomitant]
     Active Substance: CHLORMADINONE
     Indication: ENDOMETRIOSIS
     Dosage: FOR SEVERAL YEARS
     Route: 065

REACTIONS (1)
  - Ulnar tunnel syndrome [Recovering/Resolving]
